FAERS Safety Report 6755606-1 (Version None)
Quarter: 2010Q2

REPORT INFORMATION
  Report Type: 
  Country: None (occurrence: None)
  Receive Date: 20100604
  Receipt Date: 20100524
  Transmission Date: 20101027
  Serious: Yes (Other)
  Sender: FDA-Public Use
  Company Number: PHEH2006US08459

PATIENT
  Sex: Female
  Weight: 89.796 kg

DRUGS (46)
  1. COMBIPATCH [Suspect]
     Indication: MENOPAUSAL SYMPTOMS
     Route: 062
     Dates: start: 20000101, end: 20030101
  2. ESTRATEST [Suspect]
     Indication: MENOPAUSE
     Dosage: UNK
     Dates: start: 20000101, end: 20030101
  3. PREMARIN [Suspect]
  4. PROVERA [Suspect]
  5. TOPROL-XL [Concomitant]
     Indication: ANGINA PECTORIS
     Dates: start: 20000801, end: 20060801
  6. HYDROCHLORZIDE [Concomitant]
     Indication: DIURETIC THERAPY
     Dates: start: 20030801, end: 20060801
  7. NORVASC [Concomitant]
     Indication: HYPERTENSION
     Dates: start: 20030801, end: 20060801
  8. PLAQUENIL [Concomitant]
     Indication: ARTHRITIS
     Dosage: 200 MG, UNK
     Dates: start: 20000801, end: 20060801
  9. ALLEGRA [Concomitant]
     Indication: HYPERSENSITIVITY
  10. LIPITOR [Concomitant]
     Indication: BLOOD CHOLESTEROL
     Dates: start: 20050801, end: 20060801
  11. KEPPRA [Concomitant]
     Dosage: 250 MG / B.I.D.
  12. MAXZIDE [Concomitant]
     Dosage: 25 MG / AS NEEDED
  13. ASPIRIN [Concomitant]
     Dosage: UNK
  14. VITAMIN E [Concomitant]
     Dosage: 800 MG
  15. FOLIC ACID [Concomitant]
     Dosage: 400 MG
  16. MULTI-VITAMINS [Concomitant]
     Dosage: UNK
  17. ZYRTEC [Concomitant]
     Dosage: 10 MG
  18. GLUCOSAMINE /CHONDROITIN /MSM [Concomitant]
     Dosage: UNK
  19. BECONASE [Concomitant]
     Dosage: UNK
  20. BEXTRA [Concomitant]
     Dosage: 10 MG / H.S.
  21. FISH OIL [Concomitant]
     Dosage: 1000 MG
  22. AMBIEN [Concomitant]
     Dosage: 10 MG / Q.H.S.
     Route: 048
  23. CALCIUM CARBONATE [Concomitant]
     Dosage: 1200 MG
  24. PERIOGARD [Concomitant]
     Dosage: UNK
  25. DIFLUNISAL [Concomitant]
     Dosage: 500 MG / B.I.D.
  26. ASTELIN [Concomitant]
     Dosage: UNK
  27. RHINOCORT (BECLOMETASONE DIPROPIONATE) [Concomitant]
     Dosage: UNK
  28. LEVAQUIN [Concomitant]
     Dosage: UNK
  29. CLONAZEPAM [Concomitant]
     Dosage: 0.5 MG / DAILY
  30. DICLOFENAC [Concomitant]
     Dosage: 75 MG / DAILY
     Route: 048
  31. DIFLUCAN [Concomitant]
     Dosage: 150 MG / DAILY
     Route: 048
  32. CLARINEX                                /DEN/ [Concomitant]
     Dosage: 5 MG /  DAILY
  33. POTASSIUM CHLORIDE [Concomitant]
     Dosage: UNK
  34. ADVAIR DISKUS 100/50 [Concomitant]
     Dosage: UNK
  35. PROVIGIL [Concomitant]
     Dosage: 100 MG / EVERY NIGHT AT BEDTIME
  36. FLONASE [Concomitant]
     Dosage: 50 MCG / 2 X DAILY
  37. TAMOXIFEN CITRATE [Concomitant]
     Dosage: 10 MG / 2 TABLETS DAILY
     Route: 048
  38. HYDROCHLOROTHIAZIDE [Concomitant]
     Dosage: 25 MG / DAILY
  39. NASONEX [Concomitant]
     Dosage: 50 MCG /
  40. OMNICEF [Concomitant]
     Dosage: 300 MG / 2 TABLETS DAILY
     Route: 048
  41. CIPROFLOXACIN [Concomitant]
     Indication: URINARY TRACT INFECTION
     Dosage: UNK
  42. AREDIDEX [Concomitant]
  43. LEXAPRO [Concomitant]
     Dosage: UNK
  44. TRILEPTAL [Concomitant]
     Dosage: 150 MG / B.I.D.
  45. PLAQUENIL [Concomitant]
  46. VITAMIN D [Concomitant]

REACTIONS (61)
  - ABDOMINAL DISTENSION [None]
  - ABDOMINAL PAIN [None]
  - ADJUSTMENT DISORDER [None]
  - ANAEMIA [None]
  - ANXIETY [None]
  - ARTERIOSCLEROSIS CORONARY ARTERY [None]
  - ASTERIXIS [None]
  - AXILLARY MASS [None]
  - BENIGN NEOPLASM OF THYROID GLAND [None]
  - BONE PAIN [None]
  - BREAST CANCER [None]
  - BREAST MASS [None]
  - BREAST PAIN [None]
  - CENTRAL VENOUS CATHETERISATION [None]
  - CHOLELITHIASIS [None]
  - COLONIC POLYP [None]
  - CONGENITAL CYSTIC KIDNEY DISEASE [None]
  - CONSTIPATION [None]
  - DIABETES MELLITUS [None]
  - DISTURBANCE IN ATTENTION [None]
  - DIVERTICULUM [None]
  - DYSARTHRIA [None]
  - EMPHYSEMA [None]
  - FACIAL BONES FRACTURE [None]
  - FALL [None]
  - FATIGUE [None]
  - GASTROINTESTINAL DISORDER [None]
  - GASTROOESOPHAGEAL REFLUX DISEASE [None]
  - HAEMANGIOMA [None]
  - HAEMORRHAGE [None]
  - HAEMORRHOIDS [None]
  - HEMIPARESIS [None]
  - HEPATIC MASS [None]
  - HIP FRACTURE [None]
  - HIP SURGERY [None]
  - INTERVERTEBRAL DISC DEGENERATION [None]
  - LIMB INJURY [None]
  - LYMPHADENOPATHY [None]
  - MAMMOPLASTY [None]
  - MYOCLONUS [None]
  - NARCOLEPSY [None]
  - NODULE [None]
  - OEDEMA PERIPHERAL [None]
  - OPEN REDUCTION OF FRACTURE [None]
  - OSTEOARTHRITIS [None]
  - OSTEOPENIA [None]
  - OSTEOPOROSIS [None]
  - PAIN [None]
  - PAIN IN EXTREMITY [None]
  - PRURITUS [None]
  - RADICAL MASTECTOMY [None]
  - RENAL CYST [None]
  - RENAL DISORDER [None]
  - SKIN LESION [None]
  - SLEEP APNOEA SYNDROME [None]
  - TOOTH EXTRACTION [None]
  - TREMOR [None]
  - VENOUS THROMBOSIS [None]
  - VISUAL IMPAIRMENT [None]
  - WRIST FRACTURE [None]
  - WRIST SURGERY [None]
